FAERS Safety Report 5250275-4 (Version None)
Quarter: 2007Q1

REPORT INFORMATION
  Report Type: 
  Country: None (occurrence: None)
  Receive Date: 20070228
  Receipt Date: 20060315
  Transmission Date: 20070707
  Serious: No
  Sender: FDA-Public Use
  Company Number: US-GLAXOSMITHKLINE-A0597685A

PATIENT
  Age: 19 Year
  Sex: Female

DRUGS (4)
  1. LAMICTAL [Suspect]
     Indication: BIPOLAR DISORDER
     Dosage: 100MG PER DAY
     Route: 048
     Dates: start: 20040101
  2. ZOLOFT [Concomitant]
  3. ORAL CONTRACEPTIVE [Concomitant]
  4. PENICILLIN [Concomitant]

REACTIONS (1)
  - RASH ERYTHEMATOUS [None]
